FAERS Safety Report 8381702-1 (Version None)
Quarter: 2012Q2

REPORT INFORMATION
  Report Type: 
  Country: None (occurrence: None)
  Receive Date: 20120524
  Receipt Date: 20120510
  Transmission Date: 20120825
  Serious: Yes (Hospitalization)
  Sender: FDA-Public Use
  Company Number: US-BIOGENIDEC-2012BI017107

PATIENT
  Age: 37 Year
  Sex: Female

DRUGS (2)
  1. TYSABRI [Suspect]
     Indication: MULTIPLE SCLEROSIS
     Route: 042
     Dates: start: 20100414, end: 20110215
  2. TYSABRI [Suspect]
     Route: 042
     Dates: start: 20110912

REACTIONS (8)
  - SEPSIS [None]
  - URINARY TRACT INFECTION STAPHYLOCOCCAL [None]
  - DEHYDRATION [None]
  - ABASIA [None]
  - ABDOMINAL PAIN [None]
  - KIDNEY INFECTION [None]
  - ESCHERICHIA URINARY TRACT INFECTION [None]
  - CYSTITIS [None]
